FAERS Safety Report 6395141-6 (Version None)
Quarter: 2009Q4

REPORT INFORMATION
  Report Type: 
  Country: None (occurrence: None)
  Receive Date: 20091009
  Receipt Date: 20090929
  Transmission Date: 20100525
  Serious: Yes (Death, Hospitalization, Other)
  Sender: FDA-Public Use
  Company Number: NL-ROCHE-657565

PATIENT
  Age: 60 Year
  Sex: Female
  Weight: 68 kg

DRUGS (15)
  1. CELLCEPT [Suspect]
     Dosage: DOSE: 500-1000 MG
     Route: 065
  2. CELLCEPT [Suspect]
     Dosage: DOSE LOWERED TO STANDARD LEVELS
     Route: 065
  3. CELLCEPT [Suspect]
     Route: 065
     Dates: start: 19980601
  4. CELLCEPT [Suspect]
     Route: 065
     Dates: start: 19980901
  5. MABTHERA [Suspect]
     Route: 065
  6. MABTHERA [Suspect]
     Dosage: DOSE: ONCE PER ONE DOSE.
     Route: 065
     Dates: start: 19990601, end: 19990601
  7. MABTHERA [Suspect]
     Dosage: DOSE: 375 MG/M2; 4 DOSES
     Route: 065
     Dates: start: 19990630, end: 19990701
  8. COTRIM [Suspect]
     Route: 065
  9. PROGRAF [Suspect]
     Route: 065
     Dates: start: 19980601
  10. PROGRAF [Suspect]
     Dosage: DOSE LOWERED TO STANDARD LEVELS
     Route: 065
  11. PREDNISOLONE [Suspect]
     Route: 065
  12. PREDNISOLONE [Suspect]
     Dosage: DOSE LOWERED TO STANDARD LEVELS
     Route: 065
  13. ACYCLOVIR [Concomitant]
     Indication: ANTIVIRAL PROPHYLAXIS
     Route: 048
  14. ACYCLOVIR [Concomitant]
     Route: 048
  15. VALACYCLOVIR HCL [Concomitant]

REACTIONS (6)
  - ACTINOMYCOSIS [None]
  - APHTHOUS STOMATITIS [None]
  - ASPERGILLOSIS [None]
  - ESCHERICHIA INFECTION [None]
  - HYPOGAMMAGLOBULINAEMIA [None]
  - THERAPEUTIC AGENT TOXICITY [None]
